FAERS Safety Report 13534984 (Version 1)
Quarter: 2017Q2

REPORT INFORMATION
  Report Type: Spontaneous
  Country: US (occurrence: US)
  Receive Date: 20170511
  Receipt Date: 20170511
  Transmission Date: 20170830
  Serious: No
  Sender: FDA-Public Use
  Company Number: US-TEVA-752763ACC

PATIENT
  Sex: Female

DRUGS (1)
  1. CARISOPRODOL ACTAVIS [Suspect]
     Active Substance: CARISOPRODOL
     Indication: MUSCLE SPASMS
     Route: 065
     Dates: start: 2016

REACTIONS (2)
  - Urticaria [Unknown]
  - Product substitution issue [Unknown]

NARRATIVE: CASE EVENT DATE: 201610
